FAERS Safety Report 5169449-6 (Version None)
Quarter: 2006Q4

REPORT INFORMATION
  Report Type: 
  Country: None (occurrence: None)
  Receive Date: 20061201
  Receipt Date: 20061121
  Transmission Date: 20070319
  Serious: Yes (Disabling, Other)
  Sender: FDA-Public Use
  Company Number: 2006120790

PATIENT
  Sex: Male

DRUGS (7)
  1. NORVASC [Suspect]
     Indication: HYPERTENSION
     Dosage: 2.5 MG (2.5 MG,1 IN 1 D), ORAL
     Route: 048
     Dates: start: 20060501, end: 20060514
  2. GLUCOVANCE [Concomitant]
  3. VITAMIN CAP [Concomitant]
  4. ASCORBIC ACID [Concomitant]
  5. VITAMIN E [Concomitant]
  6. CHROMIUM [Concomitant]
  7. IBUPROFEN [Concomitant]

REACTIONS (3)
  - DEAFNESS [None]
  - DISTURBANCE IN ATTENTION [None]
  - TINNITUS [None]
